FAERS Safety Report 5962719-0 (Version None)
Quarter: 2008Q4

REPORT INFORMATION
  Report Type: 
  Country: None (occurrence: None)
  Receive Date: 20081124
  Receipt Date: 20081006
  Transmission Date: 20090506
  Serious: Yes (Hospitalization)
  Sender: FDA-Public Use
  Company Number: US-JNJFOC-20081001677

PATIENT
  Sex: Male
  Weight: 29.48 kg

DRUGS (3)
  1. RISPERDAL [Suspect]
     Indication: RESTLESSNESS
     Route: 048
  2. RISPERDAL [Suspect]
     Indication: ANGER
     Route: 048
  3. DAYTRANA [Suspect]
     Indication: ATTENTION DEFICIT/HYPERACTIVITY DISORDER
     Route: 062

REACTIONS (9)
  - APPLICATION SITE ERYTHEMA [None]
  - DRUG EFFECT INCREASED [None]
  - DYSKINESIA [None]
  - DYSPHAGIA [None]
  - DYSPHEMIA [None]
  - MUSCLE SPASMS [None]
  - PALPITATIONS [None]
  - PERIPHERAL COLDNESS [None]
  - PSYCHOTIC DISORDER [None]
